FAERS Safety Report 23335235 (Version 2)
Quarter: 2024Q1

REPORT INFORMATION
  Report Type: Other
  Country: JP (occurrence: JP)
  Receive Date: 20231225
  Receipt Date: 20240101
  Transmission Date: 20240410
  Serious: Yes (Hospitalization, Other)
  Sender: FDA-Public Use
  Company Number: JP-CHUGAI-2023045569AA

PATIENT
  Age: 79 Year
  Sex: Female

DRUGS (1)
  1. AVASTIN [Suspect]
     Active Substance: BEVACIZUMAB
     Indication: Breast cancer stage IV
     Dosage: UNK
     Route: 065

REACTIONS (3)
  - Large intestine perforation [Unknown]
  - Peritonitis [Unknown]
  - Stress cardiomyopathy [Unknown]
